FAERS Safety Report 4979721-8 (Version None)
Quarter: 2006Q2

REPORT INFORMATION
  Report Type: 
  Country: None (occurrence: None)
  Receive Date: 20060421
  Receipt Date: 20040430
  Transmission Date: 20061013
  Serious: Yes (Other)
  Sender: FDA-Public Use
  Company Number: 2004UW08973

PATIENT
  Age: 64 Year
  Sex: Female
  Weight: 141.4 kg

DRUGS (10)
  1. ARIMIDEX [Suspect]
     Indication: BREAST CANCER
     Route: 048
     Dates: start: 20040301
  2. ARIMIDEX [Suspect]
     Route: 048
     Dates: start: 20050324
  3. ANTI-INFLAMMATORIES [Concomitant]
  4. FOSAMAX [Concomitant]
     Dates: end: 20051201
  5. ZESTRIL [Concomitant]
     Indication: HYPERTENSION
  6. DYAZIDE [Concomitant]
  7. BEXTRA [Concomitant]
     Indication: ARTHRITIS
  8. CLARINEX [Concomitant]
     Indication: SINUS DISORDER
  9. CENTRUM SILVER [Concomitant]
  10. ASCORBIC ACID [Concomitant]

REACTIONS (7)
  - ALOPECIA [None]
  - ARTHRALGIA [None]
  - BACK PAIN [None]
  - GASTROINTESTINAL DISORDER [None]
  - MYALGIA [None]
  - OSTEOARTHRITIS [None]
  - ULCER HAEMORRHAGE [None]
